FAERS Safety Report 10784096 (Version 1)
Quarter: 2015Q1

REPORT INFORMATION
  Report Type: Report from Study
  Country: GB (occurrence: GB)
  Receive Date: 20150211
  Receipt Date: 20150211
  Transmission Date: 20150721
  Serious: Yes (Death, Life-Threatening, Disabling)
  Sender: FDA-Public Use
  Company Number: GB-BEH-2012033765

PATIENT
  Sex: Male

DRUGS (15)
  1. RIASTAP [Suspect]
     Active Substance: FIBRINOGEN HUMAN
     Indication: INTRA-THORACIC AORTIC ANEURYSM REPAIR
     Route: 042
     Dates: start: 20121019, end: 20121019
  2. SALINE [Concomitant]
     Active Substance: SODIUM CHLORIDE
     Indication: CHRONIC OBSTRUCTIVE PULMONARY DISEASE
     Dates: start: 20121020, end: 20121025
  3. REMIFENTANIL [Concomitant]
     Active Substance: REMIFENTANIL
     Indication: SEDATION
     Dosage: 41.5 MG, CONTINUOUS INFUSION
     Route: 041
     Dates: start: 20121021, end: 20121025
  4. FUROSEMIDE. [Concomitant]
     Active Substance: FUROSEMIDE
     Dosage: 10 MG, FREQUENCY AS NEEDED
     Route: 040
     Dates: start: 20121020, end: 20121021
  5. FUROSEMIDE. [Concomitant]
     Active Substance: FUROSEMIDE
     Dosage: 216 MG, CONTINUOUS INFUSION, FREQUENCY AS NEEDED
     Route: 042
     Dates: start: 20121021, end: 20121025
  6. PROTAMINE [Concomitant]
     Active Substance: PROTAMINE
     Dosage: 50 MG ONCE
     Route: 042
     Dates: start: 20121019
  7. CALCIUM GLUCONATE. [Concomitant]
     Active Substance: CALCIUM GLUCONATE
     Indication: ADVERSE EVENT
     Dosage: 10 MG, FREQUENCY AS NEEDED
     Route: 040
     Dates: start: 20121019, end: 20121020
  8. TAZOCIN [Concomitant]
     Active Substance: PIPERACILLIN SODIUM\TAZOBACTAM SODIUM
     Indication: C-REACTIVE PROTEIN INCREASED
     Route: 040
     Dates: start: 20121023, end: 20121025
  9. OMEPRAZOLE. [Concomitant]
     Active Substance: OMEPRAZOLE
     Indication: PROPHYLAXIS
     Dosage: ONCE TAKEN PRIOR TO IMP DOSE
     Route: 048
     Dates: start: 20121019
  10. GLYCOPHOS [Concomitant]
     Active Substance: SODIUM GLYCEROPHOSPHATE ANHYDROUS
     Dosage: FREQUENCY: ONCE
     Route: 042
     Dates: start: 20121020
  11. SALBUTAMOL [Concomitant]
     Active Substance: ALBUTEROL
     Indication: CHRONIC OBSTRUCTIVE PULMONARY DISEASE
     Dates: start: 20121020, end: 20121025
  12. ASPIRIN. [Concomitant]
     Active Substance: ASPIRIN
     Indication: PROPHYLAXIS
     Dosage: 75 MG NASOGASTRIC
     Route: 045
     Dates: start: 20121021, end: 20121025
  13. VENTOLIN [Concomitant]
     Active Substance: ALBUTEROL SULFATE
     Indication: CHRONIC OBSTRUCTIVE PULMONARY DISEASE
     Dosage: TAKEN PRIOR TO IMP DOSE
     Dates: start: 20121018, end: 20121019
  14. SERETIDE [Concomitant]
     Active Substance: FLUTICASONE FUROATE\SALMETEROL XINAFOATE
     Indication: CHRONIC OBSTRUCTIVE PULMONARY DISEASE
     Dosage: TAKEN PRIOR TO IMP DOSE
     Dates: start: 20121018, end: 20121019
  15. DOXAZOSIN [Concomitant]
     Active Substance: DOXAZOSIN\DOXAZOSIN MESYLATE
     Indication: CHRONIC OBSTRUCTIVE PULMONARY DISEASE
     Dosage: ONCE TAKEN PRIOR TO IMP DOSE
     Route: 048
     Dates: start: 20121018

REACTIONS (1)
  - Cerebrovascular accident [Fatal]

NARRATIVE: CASE EVENT DATE: 20121020
